FAERS Safety Report 13961762 (Version 1)
Quarter: 2017Q3

REPORT INFORMATION
  Report Type: Spontaneous
  Country: US (occurrence: US)
  Receive Date: 20170912
  Receipt Date: 20170912
  Transmission Date: 20171128
  Serious: No
  Sender: FDA-Public Use
  Company Number: US-BAYER-2017-173569

PATIENT
  Age: 78 Year
  Sex: Female
  Weight: 71 kg

DRUGS (14)
  1. BALANCED B-50 [Concomitant]
  2. ASPIRIN. [Concomitant]
     Active Substance: ASPIRIN
  3. CLARITIN [Suspect]
     Active Substance: LORATADINE
     Indication: BRONCHIECTASIS
     Dosage: 1 DF, QD
     Route: 048
     Dates: start: 20170907, end: 20170908
  4. CALCIUM MAGNESIUM [Concomitant]
     Active Substance: CALCIUM\MAGNESIUM
  5. VITAMIN C [Concomitant]
     Active Substance: ASCORBIC ACID
  6. ACIDOPHILUS [Concomitant]
     Active Substance: LACTOBACILLUS ACIDOPHILUS
  7. CLARITIN [Suspect]
     Active Substance: LORATADINE
     Indication: COUGH
  8. VITAMIN D3 [Concomitant]
     Active Substance: CHOLECALCIFEROL
  9. SYSTANE (POLYETHYLENE GLYCOL 400\PROPYLENE GLYCOL) [Concomitant]
     Active Substance: POLYETHYLENE GLYCOL 400\PROPYLENE GLYCOL
  10. LUTEIN [Concomitant]
     Active Substance: LUTEIN
  11. GLUCOSAMINE W/CHONDROITIN SULFATE [Concomitant]
     Active Substance: CHONDROITIN SULFATE (BOVINE)\GLUCOSAMINE SULFATE
  12. BIOTIN [Concomitant]
     Active Substance: BIOTIN
  13. ALBUTEROL. [Concomitant]
     Active Substance: ALBUTEROL
  14. COQ10 [Concomitant]
     Active Substance: UBIDECARENONE

REACTIONS (3)
  - Expired product administered [Unknown]
  - Off label use [Unknown]
  - Product use in unapproved indication [Unknown]

NARRATIVE: CASE EVENT DATE: 20170907
